FAERS Safety Report 4847816-5 (Version None)
Quarter: 2005Q4

REPORT INFORMATION
  Report Type: 
  Country: None (occurrence: None)
  Receive Date: 20051206
  Receipt Date: 20051123
  Transmission Date: 20060501
  Serious: Yes (Other)
  Sender: FDA-Public Use
  Company Number: HQWYE557615NOV05

PATIENT
  Age: 61 Year
  Sex: Male
  Weight: 62.9 kg

DRUGS (5)
  1. RAPAMUNE [Suspect]
     Indication: PROPHYLAXIS AGAINST TRANSPLANT REJECTION
     Dosage: 5 MG 1X PER 1 DAY ORAL
     Route: 048
     Dates: start: 20051110, end: 20051112
  2. PREDNISONE [Suspect]
     Indication: PROPHYLAXIS AGAINST TRANSPLANT REJECTION
     Dosage: ^STANDARD STEROID TAPER^; 30 MG 1X PER 1 DAY
     Dates: start: 20051101, end: 20051101
  3. PREDNISONE [Suspect]
     Indication: PROPHYLAXIS AGAINST TRANSPLANT REJECTION
     Dosage: ^STANDARD STEROID TAPER^; 30 MG 1X PER 1 DAY
     Dates: start: 20051101
  4. CELLCEPT [Concomitant]
  5. SIMULECT [Concomitant]

REACTIONS (9)
  - COMPLICATIONS OF TRANSPLANTED KIDNEY [None]
  - CROSSMATCH INCOMPATIBLE [None]
  - CYTOMEGALOVIRUS INFECTION [None]
  - DIALYSIS [None]
  - DYSPHAGIA [None]
  - GASTRIC ULCER [None]
  - OESOPHAGITIS [None]
  - PEPTIC ULCER [None]
  - POST PROCEDURAL COMPLICATION [None]
